FAERS Safety Report 9720186 (Version 1)
Quarter: 2013Q4

REPORT INFORMATION
  Report Type: Spontaneous
  Country: FR (occurrence: FR)
  Receive Date: 20131129
  Receipt Date: 20131129
  Transmission Date: 20140711
  Serious: Yes (Hospitalization)
  Sender: FDA-Public Use
  Company Number: FR-ROCHE-1307935

PATIENT
  Age: 90 Year
  Sex: Male

DRUGS (18)
  1. ROCEPHINE [Suspect]
     Indication: PRODUCT USED FOR UNKNOWN INDICATION
     Route: 042
     Dates: start: 20130909, end: 20130921
  2. PREVISCAN (FRANCE) [Suspect]
     Indication: PRODUCT USED FOR UNKNOWN INDICATION
     Route: 002
     Dates: end: 20130909
  3. PREVISCAN (FRANCE) [Suspect]
     Route: 065
  4. TAVANIC [Suspect]
     Indication: PRODUCT USED FOR UNKNOWN INDICATION
     Route: 042
     Dates: start: 20130907, end: 20130921
  5. FLAGYL [Suspect]
     Indication: PRODUCT USED FOR UNKNOWN INDICATION
     Route: 042
     Dates: start: 20130909, end: 20130921
  6. FORLAX (FRANCE) [Concomitant]
     Route: 002
  7. CORDARONE [Concomitant]
     Route: 002
  8. LEVOTHYROX [Concomitant]
     Indication: HYPOTHYROIDISM
     Route: 002
  9. AVODART [Concomitant]
     Route: 002
  10. XATRAL [Concomitant]
     Route: 002
     Dates: start: 20130905, end: 20130909
  11. DOLIPRANE [Concomitant]
     Route: 002
  12. OMEXEL [Concomitant]
     Route: 065
     Dates: end: 20130905
  13. AMOXICILLIN SODIUM/CLAVULANATE POTASSIUM [Concomitant]
  14. LOVENOX [Concomitant]
     Route: 058
  15. LOVENOX [Concomitant]
     Route: 058
     Dates: start: 20130914
  16. LASILIX [Concomitant]
     Route: 065
     Dates: start: 20130905, end: 20130908
  17. BRICANYL [Concomitant]
     Route: 065
  18. ATROVENT [Concomitant]
     Route: 065

REACTIONS (2)
  - International normalised ratio increased [Recovered/Resolved]
  - Overdose [Unknown]
